FAERS Safety Report 8884524 (Version 2)
Quarter: 2012Q4

REPORT INFORMATION
  Report Type: 
  Country: US (occurrence: US)
  Receive Date: 20121102
  Receipt Date: 20121109
  Transmission Date: 20130627
  Serious: Yes (Other)
  Sender: FDA-Public Use
  Company Number: PHHY2012US097326

PATIENT
  Age: 59 Year
  Sex: Male

DRUGS (3)
  1. NILOTINIB [Suspect]
     Indication: CHRONIC MYELOID LEUKAEMIA
     Dosage: 400 mg, BID
     Route: 048
  2. NILOTINIB [Suspect]
     Dosage: 400 mg, daily
     Route: 048
  3. NILOTINIB [Suspect]
     Dosage: 200 mg, daily
     Route: 048

REACTIONS (4)
  - Raynaud^s phenomenon [Recovered/Resolved]
  - Lipase increased [Unknown]
  - Amylase increased [Unknown]
  - Hyperbilirubinaemia [Recovered/Resolved]
